FAERS Safety Report 5601382-5 (Version None)
Quarter: 2008Q1

REPORT INFORMATION
  Report Type: 
  Country: None (occurrence: None)
  Receive Date: 20080110
  Receipt Date: 20070411
  Transmission Date: 20080703
  Serious: Yes (Hospitalization)
  Sender: FDA-Public Use
  Company Number: 20070411VANCO0225

PATIENT
  Age: 66 Year
  Sex: Male
  Weight: 57 kg

DRUGS (7)
  1. VANCOMYCIN HCL [Suspect]
     Indication: ENTEROCOLITIS
     Dosage: 2 GM (0.5 GM,4 IN 1 D),ORAL
     Route: 048
     Dates: start: 20070216, end: 20070222
  2. VANCOMYCIN HCL [Suspect]
     Indication: STAPHYLOCOCCAL INFECTION
     Dosage: 2 GM (0.5 GM,4 IN 1 D),ORAL
     Route: 048
     Dates: start: 20070216, end: 20070222
  3. DIFLUPREDNATE(DIFLUPREDNATE) [Concomitant]
  4. LAC B (LACTOBACILLUS BIFIDUS, LYOPHILIZED) (GRANULATES) [Concomitant]
  5. AMLODIN (AMLODIPINE BESILATE) (TABLETS) [Concomitant]
  6. WARAFIN POTASSIUM(WARFARIN) (TABLETS) [Concomitant]
  7. DEPAS (ETIZOLAM) (GRANULATE) [Concomitant]

REACTIONS (2)
  - ERYTHEMA MULTIFORME [None]
  - STEVENS-JOHNSON SYNDROME [None]
